FAERS Safety Report 7563399-3 (Version None)
Quarter: 2011Q2

REPORT INFORMATION
  Report Type: 
  Country: None (occurrence: None)
  Receive Date: 20110622
  Receipt Date: 20110615
  Transmission Date: 20111010
  Serious: Yes (Other)
  Sender: FDA-Public Use
  Company Number: A0932250A

PATIENT
  Age: 90 Year
  Sex: Male

DRUGS (5)
  1. XANAX [Concomitant]
  2. PAXIL [Suspect]
     Indication: DEPRESSION
     Dosage: 1TAB PER DAY
     Route: 048
     Dates: start: 20110501, end: 20110614
  3. LASIX [Concomitant]
  4. COREG [Concomitant]
  5. POTASSIUM [Concomitant]

REACTIONS (3)
  - REFUSAL OF TREATMENT BY PATIENT [None]
  - HALLUCINATION [None]
  - FOOD AVERSION [None]
